FAERS Safety Report 16223646 (Version 2)
Quarter: 2019Q2

REPORT INFORMATION
  Report Type: Spontaneous
  Country: US (occurrence: US)
  Receive Date: 20190422
  Receipt Date: 20190624
  Transmission Date: 20190711
  Serious: Yes (Other)
  Sender: FDA-Public Use
  Company Number: US-PFIZER INC-2019051071

PATIENT
  Age: 66 Year
  Sex: Male

DRUGS (20)
  1. VIAGRA [Concomitant]
     Active Substance: SILDENAFIL CITRATE
     Indication: VASODILATATION
     Dosage: UNK
     Dates: start: 2013
  2. NEXIUM [Suspect]
     Active Substance: ESOMEPRAZOLE MAGNESIUM
     Indication: GASTROOESOPHAGEAL REFLUX DISEASE
     Dosage: UNK
     Route: 048
     Dates: start: 200704, end: 201405
  3. PREVACID [Suspect]
     Active Substance: LANSOPRAZOLE
     Dosage: 30 MG, UNK
     Dates: start: 2007, end: 2009
  4. PEPCID [Concomitant]
     Active Substance: FAMOTIDINE
     Dosage: UNK
  5. FAMOTIDINE OTC [Concomitant]
     Active Substance: FAMOTIDINE
     Dosage: UNK
  6. NEXIUM [Suspect]
     Active Substance: ESOMEPRAZOLE MAGNESIUM
     Dosage: 40 MG, 1X/DAY
     Route: 048
     Dates: start: 2004, end: 2014
  7. NEXIUM [Suspect]
     Active Substance: ESOMEPRAZOLE MAGNESIUM
     Dosage: 40 MG, UNK
     Dates: start: 2010, end: 2014
  8. CIMETIDINE OTC [Concomitant]
     Dosage: UNK
  9. ZANTAC [Concomitant]
     Active Substance: RANITIDINE HYDROCHLORIDE
     Dosage: UNK
  10. ESOMEPRAZOLE. [Suspect]
     Active Substance: ESOMEPRAZOLE MAGNESIUM
     Dosage: 40 MG, UNK
  11. PREVACID [Suspect]
     Active Substance: LANSOPRAZOLE
     Indication: GASTROOESOPHAGEAL REFLUX DISEASE
     Dosage: UNK
     Route: 048
     Dates: start: 200704, end: 201405
  12. DEXILANT [Suspect]
     Active Substance: DEXLANSOPRAZOLE
     Indication: GASTROOESOPHAGEAL REFLUX DISEASE
     Dosage: UNK
     Route: 048
     Dates: start: 200704, end: 201405
  13. LANSOPRAZOLE. [Suspect]
     Active Substance: LANSOPRAZOLE
     Indication: GASTROOESOPHAGEAL REFLUX DISEASE
     Dosage: 30 MG, UNK
     Dates: start: 2009
  14. PEPCID AC OTC [Concomitant]
     Dosage: UNK
  15. PEPCID COMPLETE OTC [Concomitant]
     Dosage: UNK
  16. ESOMEPRAZOLE. [Suspect]
     Active Substance: ESOMEPRAZOLE MAGNESIUM
     Indication: GASTROOESOPHAGEAL REFLUX DISEASE
     Dosage: 40 MG, 1X/DAY
     Route: 048
     Dates: start: 2004, end: 2014
  17. AMLODIPINE [Concomitant]
     Active Substance: AMLODIPINE BESYLATE
     Indication: BLOOD PRESSURE ABNORMAL
     Dosage: UNK
     Dates: start: 2013
  18. ZANTAC 150 OTC [Concomitant]
     Dosage: UNK
  19. DEXILANT [Suspect]
     Active Substance: DEXLANSOPRAZOLE
     Dosage: 60 MG, UNK
     Dates: start: 2011
  20. OMEPRAZOLE. [Suspect]
     Active Substance: OMEPRAZOLE
     Indication: GASTROOESOPHAGEAL REFLUX DISEASE
     Dosage: UNK
     Route: 048
     Dates: start: 2007, end: 2014

REACTIONS (1)
  - Chronic kidney disease [Not Recovered/Not Resolved]

NARRATIVE: CASE EVENT DATE: 20130922
